FAERS Safety Report 9580664 (Version 1)
Quarter: 2013Q3

REPORT INFORMATION
  Report Type: Spontaneous
  Country: US (occurrence: None)
  Receive Date: 20130916
  Receipt Date: 20130916
  Transmission Date: 20140515
  Serious: Yes (Other)
  Sender: FDA-Public Use
  Company Number: JPI-P-033669

PATIENT
  Age: 53 Year
  Sex: Female
  Weight: 85.28 kg

DRUGS (10)
  1. XYREM [Suspect]
     Indication: NARCOLEPSY
     Dosage: 4.5GM (2.25GM, 2 IN 1D) ORAL
     Route: 048
     Dates: start: 20130531
  2. XYREM [Suspect]
     Indication: SOMNOLENCE
     Dosage: 4.5GM (2.25GM, 2 IN 1D) ORAL
     Route: 048
     Dates: start: 20130531
  3. TIZANIDINE [Concomitant]
  4. NAPROXEN [Concomitant]
  5. GABAPENTIN ENACARBIL EXTENDED-RELEASE [Concomitant]
  6. ASPIRIN [Concomitant]
  7. OMEPRAZOLE [Concomitant]
  8. ALBUTEROL SULFATE (INHALANT) [Concomitant]
  9. ROSUVASTATIN CALCIUM [Concomitant]
  10. MOMETASONE FUROATE [Concomitant]

REACTIONS (8)
  - Tremor [None]
  - Hypertension [None]
  - Blood pressure fluctuation [None]
  - Chest discomfort [None]
  - Migraine [None]
  - Weight decreased [None]
  - Headache [None]
  - Feeling abnormal [None]
